FAERS Safety Report 4402388-4 (Version None)
Quarter: 2004Q3

REPORT INFORMATION
  Report Type: 
  Country: None (occurrence: None)
  Receive Date: 20040715
  Receipt Date: 20040707
  Transmission Date: 20050211
  Serious: Yes (Other)
  Sender: FDA-Public Use
  Company Number: 2004222552US

PATIENT
  Sex: Female

DRUGS (3)
  1. PROVERA [Suspect]
     Indication: HORMONE REPLACEMENT THERAPY
     Dates: start: 19950306, end: 19970401
  2. ORTHO-EST [Suspect]
     Indication: HORMONE REPLACEMENT THERAPY
     Dates: start: 19950306, end: 19970401
  3. PREMPRO [Suspect]
     Indication: HORMONE REPLACEMENT THERAPY
     Dates: start: 19970501, end: 20020301

REACTIONS (1)
  - BREAST CANCER FEMALE [None]
